FAERS Safety Report 9734647 (Version 2)
Quarter: 2013Q4

REPORT INFORMATION
  Report Type: Spontaneous
  Country: US (occurrence: US)
  Receive Date: 20131206
  Receipt Date: 20131206
  Transmission Date: 20140711
  Serious: Yes (Other)
  Sender: FDA-Public Use
  Company Number: US-BEH-2013038779

PATIENT
  Sex: 0

DRUGS (1)
  1. HIZENTRA [Suspect]
     Route: 058

REACTIONS (1)
  - Meningitis aseptic [Unknown]
